FAERS Safety Report 6846103-3 (Version None)
Quarter: 2010Q3

REPORT INFORMATION
  Report Type: 
  Country: None (occurrence: None)
  Receive Date: 20100715
  Receipt Date: 20071018
  Transmission Date: 20110219
  Serious: Yes (Hospitalization)
  Sender: FDA-Public Use
  Company Number: US-PFIZER INC-2007074396

PATIENT
  Age: 42 Year
  Sex: Female
  Weight: 68.9 kg

DRUGS (8)
  1. CHANTIX [Suspect]
     Indication: NICOTINE DEPENDENCE
     Dates: start: 20070701, end: 20070801
  2. LISINOPRIL [Concomitant]
  3. GLUCOPHAGE [Concomitant]
  4. ABILIFY [Concomitant]
  5. LAMICTAL [Concomitant]
  6. SPIRONOLACTONE [Concomitant]
  7. LOPID [Concomitant]
  8. NORCO [Concomitant]

REACTIONS (3)
  - NAUSEA [None]
  - RENAL FAILURE ACUTE [None]
  - VOMITING [None]
